FAERS Safety Report 5717144-4 (Version None)
Quarter: 2008Q2

REPORT INFORMATION
  Report Type: 
  Country: None (occurrence: None)
  Receive Date: 20080424
  Receipt Date: 20080412
  Transmission Date: 20081010
  Serious: Yes (Other)
  Sender: FDA-Public Use
  Company Number: PH-PFIZER INC-2008033306

PATIENT
  Age: 70 Year

DRUGS (1)
  1. SULPERAZONE [Suspect]

REACTIONS (1)
  - JAUNDICE [None]
